FAERS Safety Report 8060238 (Version 4)
Quarter: 2012Q4

REPORT INFORMATION
  Report Type: Spontaneous
  Country: FR (occurrence: None)
  Receive Date: 20110718
  Receipt Date: 20121024
  Transmission Date: 20130627
  Serious: Yes (Other)
  Sender: FDA-Public Use
  Company Number: FR-1187019

PATIENT

DRUGS (3)
  1. BSS [Suspect]
     Dosage: (INTRAOCULAR)
     Route: 031
     Dates: start: 20110621, end: 20110621
  2. BETADINE [Concomitant]
  3. TOBRADEX [Concomitant]

REACTIONS (2)
  - Toxic anterior segment syndrome [None]
  - Hypopyon [None]
